FAERS Safety Report 21811825 (Version 1)
Quarter: 2023Q1

REPORT INFORMATION
  Report Type: Spontaneous
  Country: US (occurrence: None)
  Receive Date: 20230102
  Receipt Date: 20230102
  Transmission Date: 20230417
  Serious: Yes (Death, Disabling)
  Sender: FDA-Public Use
  Company Number: None

PATIENT

DRUGS (1)
  1. ZOLOFT [Suspect]
     Active Substance: SERTRALINE HYDROCHLORIDE

REACTIONS (8)
  - Completed suicide [None]
  - Confusional state [None]
  - Panic attack [None]
  - Insomnia [None]
  - Cognitive disorder [None]
  - Memory impairment [None]
  - Brain injury [None]
  - Fear [None]
